FAERS Safety Report 8566928 (Version 6)
Quarter: 2014Q2

REPORT INFORMATION
  Report Type: Spontaneous
  Country: US (occurrence: US)
  Receive Date: 20120517
  Receipt Date: 20140507
  Transmission Date: 20141212
  Serious: No
  Sender: FDA-Public Use
  Company Number: US-ASTRAZENECA-2012SE30103

PATIENT
  Age: 56 Year
  Sex: Male
  Weight: 102.1 kg

DRUGS (13)
  1. NEXIUM [Suspect]
     Indication: GASTROOESOPHAGEAL REFLUX DISEASE
     Route: 048
     Dates: start: 2012, end: 201404
  2. NEXIUM [Suspect]
     Indication: PEPTIC ULCER
     Route: 048
     Dates: start: 2012, end: 201404
  3. NEXIUM [Suspect]
     Indication: GASTROOESOPHAGEAL REFLUX DISEASE
     Route: 048
  4. NEXIUM [Suspect]
     Indication: PEPTIC ULCER
     Route: 048
  5. LISINOPRIL/HCTZ [Suspect]
     Indication: BLOOD PRESSURE ABNORMAL
     Route: 048
     Dates: start: 2011
  6. CRESTOR [Suspect]
     Indication: BLOOD CHOLESTEROL ABNORMAL
     Route: 048
     Dates: start: 2011
  7. ALPRAZOLAM [Concomitant]
     Indication: ANXIETY
  8. GABAPENTIN [Concomitant]
     Indication: PERSISTENT FOETAL CIRCULATION
  9. CITALOPRAM [Concomitant]
     Indication: DEPRESSION
  10. AMLODIPINE [Concomitant]
     Indication: BLOOD PRESSURE ABNORMAL
  11. GEMFIBROZIL [Concomitant]
     Indication: BLOOD CHOLESTEROL ABNORMAL
  12. ASPIRIN [Concomitant]
     Indication: CARDIAC DISORDER
  13. ADVAIR [Concomitant]
     Indication: DYSPNOEA

REACTIONS (10)
  - Bronchitis [Unknown]
  - Dyspepsia [Unknown]
  - Gastrooesophageal reflux disease [Unknown]
  - Nasopharyngitis [Unknown]
  - Weight gain poor [Unknown]
  - Poor peripheral circulation [Unknown]
  - Blood cholesterol increased [Unknown]
  - Chest pain [Unknown]
  - Dyspepsia [Unknown]
  - Drug dose omission [Unknown]
